FAERS Safety Report 14819388 (Version 1)
Quarter: 2018Q2

REPORT INFORMATION
  Report Type: Spontaneous
  Country: US (occurrence: US)
  Receive Date: 20180427
  Receipt Date: 20180427
  Transmission Date: 20180711
  Serious: No
  Sender: FDA-Public Use
  Company Number: US-TEVA-2018-US-882146

PATIENT
  Age: 45 Year
  Sex: Female

DRUGS (1)
  1. ADIPEX-P [Suspect]
     Active Substance: PHENTERMINE HYDROCHLORIDE
     Indication: WEIGHT INCREASED
     Route: 065

REACTIONS (2)
  - Drug ineffective [Unknown]
  - Weight loss poor [Unknown]

NARRATIVE: CASE EVENT DATE: 201803
